FAERS Safety Report 11437130 (Version 1)
Quarter: 2015Q3

REPORT INFORMATION
  Report Type: Spontaneous
  Country: US (occurrence: US)
  Receive Date: 20150821
  Receipt Date: 20150821
  Transmission Date: 20151125
  Serious: No
  Sender: FDA-Public Use
  Company Number: US-ELI_LILLY_AND_COMPANY-US200703001474

PATIENT
  Sex: Female

DRUGS (3)
  1. CYMBALTA [Suspect]
     Active Substance: DULOXETINE HYDROCHLORIDE
     Indication: DEPRESSION
     Dosage: 30 MG, UNK
     Dates: start: 20070305, end: 20070305
  2. CYMBALTA [Suspect]
     Active Substance: DULOXETINE HYDROCHLORIDE
     Dosage: 20 MG, UNK
     Dates: start: 20070306
  3. VITAMINS [Concomitant]
     Active Substance: VITAMINS

REACTIONS (12)
  - Muscle tightness [Recovering/Resolving]
  - Feeling hot [Recovering/Resolving]
  - Tremor [Recovering/Resolving]
  - Abdominal discomfort [Recovering/Resolving]
  - Vision blurred [Recovering/Resolving]
  - Feeling abnormal [Recovering/Resolving]
  - Trismus [Recovering/Resolving]
  - Depression [Recovering/Resolving]
  - Panic reaction [Recovering/Resolving]
  - Insomnia [Recovering/Resolving]
  - Tension [Recovering/Resolving]
  - Mydriasis [Recovering/Resolving]

NARRATIVE: CASE EVENT DATE: 200703
